FAERS Safety Report 7801867-7 (Version None)
Quarter: 2011Q4

REPORT INFORMATION
  Report Type: 
  Country: None (occurrence: None)
  Receive Date: 20111007
  Receipt Date: 20110930
  Transmission Date: 20120403
  Serious: Yes (Other)
  Sender: FDA-Public Use
  Company Number: GB-PFIZER INC-2011193249

PATIENT
  Age: 53 Year
  Sex: Female
  Weight: 76 kg

DRUGS (2)
  1. MEDROXYPROGESTERONE ACETATE [Suspect]
     Indication: MENOPAUSAL SYMPTOMS
     Dosage: UNK
     Dates: start: 20101201, end: 20110819
  2. MEDROXYPROGESTERONE ACETATE [Suspect]
     Indication: HORMONE REPLACEMENT THERAPY

REACTIONS (3)
  - POSTMENOPAUSAL HAEMORRHAGE [None]
  - BLOOD CHOLESTEROL INCREASED [None]
  - HYPERTENSION [None]
